FAERS Safety Report 9316753 (Version 1)
Quarter: 2013Q2

REPORT INFORMATION
  Report Type: Spontaneous
  Country: US (occurrence: US)
  Receive Date: 20130530
  Receipt Date: 20130530
  Transmission Date: 20140414
  Serious: No
  Sender: FDA-Public Use
  Company Number: US-PFIZER INC-2013160757

PATIENT
  Sex: Male

DRUGS (6)
  1. LIPITOR [Suspect]
     Indication: BLOOD CHOLESTEROL INCREASED
     Dosage: 20 MG, DAILY
     Dates: start: 2012, end: 20130323
  2. CARDURA [Suspect]
     Indication: PROSTATIC DISORDER
     Dosage: 4 MG, EVERY 2 DAYS
  3. ACCUPRIL [Suspect]
     Indication: HYPERTENSION
     Dosage: 10 MG, DAILY
     Dates: start: 2012, end: 20130323
  4. BENAZEPRIL HYDROCHLORIDE [Suspect]
     Indication: HYPERTENSION
     Dosage: 10 MG, DAILY IN THE MORNING
     Dates: start: 20130323
  5. LOVASTATIN [Suspect]
     Indication: BLOOD CHOLESTEROL INCREASED
     Dosage: 80 MG (TWO TABLETS OF 40MG), DAILY
     Route: 048
     Dates: start: 20130323
  6. LOVASTATIN [Suspect]
     Dosage: 20 MG, DAILY
     Route: 048

REACTIONS (3)
  - Asthenia [Unknown]
  - Malaise [Unknown]
  - Drug ineffective [Unknown]
